FAERS Safety Report 9934834 (Version 1)
Quarter: 2014Q1

REPORT INFORMATION
  Report Type: Report from Study
  Country: CA (occurrence: CA)
  Receive Date: 20140228
  Receipt Date: 20140228
  Transmission Date: 20141002
  Serious: Yes (Other)
  Sender: FDA-Public Use
  Company Number: PHHY2014CA024946

PATIENT
  Age: 87 Year
  Sex: Female

DRUGS (3)
  1. ACLASTA [Suspect]
     Indication: OSTEOPOROSIS
     Dosage: UNK
     Route: 042
     Dates: start: 20101214
  2. ACLASTA [Suspect]
     Dosage: UNK
     Route: 042
     Dates: start: 2011
  3. ACLASTA [Suspect]
     Dosage: UNK
     Route: 042
     Dates: start: 2012

REACTIONS (3)
  - Lymphoma [Unknown]
  - Oedema peripheral [Unknown]
  - Arthritis [Unknown]
